FAERS Safety Report 17298943 (Version 4)
Quarter: 2020Q3

REPORT INFORMATION
  Report Type: Report from Study
  Country: CO (occurrence: CO)
  Receive Date: 20200121
  Receipt Date: 20200910
  Transmission Date: 20201102
  Serious: Yes (Life-Threatening, Hospitalization)
  Sender: FDA-Public Use
  Company Number: NVSC2020CO011610

PATIENT
  Age: 15 Year
  Sex: Female
  Weight: 45 kg

DRUGS (3)
  1. CICLOSPORIN SANDOZ [Suspect]
     Active Substance: CYCLOSPORINE
     Indication: PRODUCT USED FOR UNKNOWN INDICATION
     Dosage: UNK
     Route: 065
  2. REVOLADE [Suspect]
     Active Substance: ELTROMBOPAG
     Indication: IMMUNE THROMBOCYTOPENIA
     Dosage: 50 MG, QD
     Route: 048
  3. REVOLADE [Suspect]
     Active Substance: ELTROMBOPAG
     Dosage: 75 MG, QD
     Route: 048

REACTIONS (7)
  - Platelet count decreased [Unknown]
  - Viral infection [Recovered/Resolved]
  - Influenza [Recovered/Resolved]
  - Gingival bleeding [Unknown]
  - Pyrexia [Recovered/Resolved]
  - Heart rate increased [Unknown]
  - Platelet count decreased [Recovered/Resolved]

NARRATIVE: CASE EVENT DATE: 20200109
